FAERS Safety Report 8352689-2 (Version None)
Quarter: 2012Q2

REPORT INFORMATION
  Report Type: 
  Country: None (occurrence: None)
  Receive Date: 20120511
  Receipt Date: 20120508
  Transmission Date: 20120825
  Serious: Yes (Death, Life-Threatening, Hospitalization)
  Sender: FDA-Public Use
  Company Number: NO-B.I. PHARMACEUTICALS,INC./RIDGEFIELD-2012-SW-00376NO

PATIENT
  Sex: Female

DRUGS (4)
  1. FUROSEMIDE [Concomitant]
     Dosage: 80 MG
  2. PRADAXA [Suspect]
     Indication: ATRIAL FIBRILLATION
     Dosage: 220 MG
     Route: 048
     Dates: end: 20120331
  3. POTASSIUM CHLORIDE [Concomitant]
     Dosage: 750 MG
  4. METOPROLOL SUCCINATE [Concomitant]
     Dosage: 50 MG

REACTIONS (2)
  - POST PROCEDURAL HAEMORRHAGE [None]
  - MULTI-ORGAN FAILURE [None]
